FAERS Safety Report 5151210-X (Version None)
Quarter: 2006Q4

REPORT INFORMATION
  Report Type: 
  Country: None (occurrence: None)
  Receive Date: 20061114
  Receipt Date: 20061114
  Transmission Date: 20070319
  Serious: Yes (Hospitalization)
  Sender: FDA-Public Use
  Company Number: None

PATIENT
  Age: 73 Year
  Sex: Male
  Weight: 65.7716 kg

DRUGS (1)
  1. THALIDOMIDE [Suspect]
     Indication: MYELOFIBROSIS
     Dosage: 200MG   QHS   PO
     Route: 048
     Dates: start: 20060501, end: 20061012

REACTIONS (1)
  - HEPATITIS [None]
